FAERS Safety Report 14064407 (Version 4)
Quarter: 2018Q1

REPORT INFORMATION
  Report Type: Spontaneous
  Country: US (occurrence: US)
  Receive Date: 20171009
  Receipt Date: 20180220
  Transmission Date: 20180508
  Serious: Yes (Other)
  Sender: FDA-Public Use
  Company Number: US-JNJFOC-20171001283

PATIENT
  Age: 68 Year
  Sex: Female
  Weight: 53.07 kg

DRUGS (10)
  1. POTASSIUM [Concomitant]
     Active Substance: POTASSIUM
     Indication: BLOOD DISORDER
     Route: 065
     Dates: start: 20170313
  2. REVLIMID [Concomitant]
     Active Substance: LENALIDOMIDE
     Indication: PLASMA CELL MYELOMA
     Dosage: 3 WEEKS ON AND ONE WEEK OFF
     Route: 042
     Dates: start: 2015
  3. POTASSIUM [Concomitant]
     Active Substance: POTASSIUM
     Indication: PARAESTHESIA
     Route: 065
     Dates: start: 20170313
  4. DURAGESIC [Suspect]
     Active Substance: FENTANYL
     Indication: PRODUCT USED FOR UNKNOWN INDICATION
     Route: 065
     Dates: start: 2006
  5. POTASSIUM [Concomitant]
     Active Substance: POTASSIUM
     Indication: JOINT STIFFNESS
     Route: 065
     Dates: start: 20170313
  6. SYNTHROID [Concomitant]
     Active Substance: LEVOTHYROXINE SODIUM
     Route: 065
     Dates: start: 2006
  7. PREDNISONE. [Concomitant]
     Active Substance: PREDNISONE
     Indication: ARTHRITIS
     Route: 065
  8. REVLIMID [Concomitant]
     Active Substance: LENALIDOMIDE
     Indication: PLASMA CELL MYELOMA
     Dosage: 3 WEEKS ON AND ONE WEEK OFF
     Route: 065
     Dates: start: 2016
  9. POTASSIUM [Concomitant]
     Active Substance: POTASSIUM
     Indication: PAIN
     Route: 065
     Dates: start: 20170313
  10. AMBIEN [Concomitant]
     Active Substance: ZOLPIDEM TARTRATE
     Indication: SLEEP DISORDER
     Route: 065

REACTIONS (5)
  - Plasma cell myeloma [Unknown]
  - Blood potassium decreased [Not Recovered/Not Resolved]
  - General physical condition abnormal [Unknown]
  - Nasopharyngitis [Not Recovered/Not Resolved]
  - Product label issue [Unknown]

NARRATIVE: CASE EVENT DATE: 201502
